FAERS Safety Report 4918964-6 (Version None)
Quarter: 2006Q1

REPORT INFORMATION
  Report Type: 
  Country: None (occurrence: None)
  Receive Date: 20060222
  Receipt Date: 20060214
  Transmission Date: 20060701
  Serious: Yes (Hospitalization)
  Sender: FDA-Public Use
  Company Number: JP-JPN-A200600610

PATIENT
  Age: 12 Year
  Sex: Female

DRUGS (7)
  1. FLOLAN [Suspect]
     Route: 042
     Dates: start: 20060113
  2. WARFARIN SODIUM [Concomitant]
     Route: 048
  3. PROCYLIN [Concomitant]
     Dosage: 5U PER DAY
     Route: 048
  4. UNKNOWN DRUG [Concomitant]
     Dosage: 2U PER DAY
     Route: 048
  5. VIAGRA [Concomitant]
     Dosage: 2U PER DAY
     Route: 048
  6. LASIX [Concomitant]
     Route: 048
  7. ALDACTONE [Concomitant]
     Route: 048

REACTIONS (1)
  - PERICARDIAL EFFUSION [None]
